FAERS Safety Report 9134470 (Version 1)
Quarter: 2013Q1

REPORT INFORMATION
  Report Type: Report from Study
  Country: CA (occurrence: CA)
  Receive Date: 20130304
  Receipt Date: 20130304
  Transmission Date: 20140127
  Serious: Yes (Other)
  Sender: FDA-Public Use
  Company Number: CA-JNJFOC-20130215642

PATIENT
  Sex: 0

DRUGS (1)
  1. REMICADE [Suspect]
     Indication: CROHN^S DISEASE

REACTIONS (5)
  - Migraine [Unknown]
  - Infusion related reaction [Unknown]
  - Dizziness [Unknown]
  - Pruritus [Unknown]
  - Influenza like illness [Unknown]
